FAERS Safety Report 10689976 (Version 1)
Quarter: 2015Q1

REPORT INFORMATION
  Report Type: Spontaneous
  Country: US (occurrence: None)
  Receive Date: 20150102
  Receipt Date: 20150102
  Transmission Date: 20150720
  Serious: Yes (Hospitalization)
  Sender: FDA-Public Use
  Company Number: None

PATIENT
  Age: 42 Year
  Sex: Female
  Weight: 47.6 kg

DRUGS (1)
  1. MIRENA [Suspect]
     Active Substance: LEVONORGESTREL
     Route: 015
     Dates: start: 20090717, end: 20141205

REACTIONS (4)
  - Device dislocation [None]
  - Foreign body [None]
  - Pelvic abscess [None]
  - Uterine perforation [None]

NARRATIVE: CASE EVENT DATE: 20141205
